FAERS Safety Report 6666979-2 (Version None)
Quarter: 2010Q2

REPORT INFORMATION
  Report Type: 
  Country: None (occurrence: None)
  Receive Date: 20100405
  Receipt Date: 20100330
  Transmission Date: 20101027
  Serious: Yes (Life-Threatening, Other)
  Sender: FDA-Public Use
  Company Number: PHHY2010BR19470

PATIENT
  Age: 60 Year
  Sex: Female

DRUGS (4)
  1. DIOVAN HCT [Suspect]
     Indication: HYPERTENSION
     Dosage: 160/25 MG , 1 TABLET DAILY
  2. DIOVAN HCT [Suspect]
     Dosage: 160/12.5 MG
     Dates: start: 20100330
  3. PRESSAT [Concomitant]
     Dosage: 5 MG, ONE TABLET DAILY
  4. PURAN T4 [Concomitant]
     Indication: HYPERTHYROIDISM
     Dosage: 50 MCG,1 TABLET DAILY
     Route: 048

REACTIONS (5)
  - DRUG DISPENSING ERROR [None]
  - DRUG INEFFECTIVE [None]
  - FEELING ABNORMAL [None]
  - HYPERTENSION [None]
  - INCORRECT DOSE ADMINISTERED [None]
